FAERS Safety Report 25885622 (Version 1)
Quarter: 2025Q4

REPORT INFORMATION
  Report Type: Spontaneous
  Country: JP (occurrence: JP)
  Receive Date: 20251006
  Receipt Date: 20251006
  Transmission Date: 20260117
  Serious: Yes (Hospitalization, Other)
  Sender: BRISTOL-MYERS SQUIBB COMPANY
  Company Number: JP-BRISTOL-MYERS SQUIBB COMPANY-2025-118067

PATIENT
  Age: 56 Year
  Sex: Female

DRUGS (2)
  1. YERVOY [Suspect]
     Active Substance: IPILIMUMAB
     Indication: Oesophageal carcinoma recurrent
     Dates: start: 20250715, end: 20250729
  2. OPDIVO [Suspect]
     Active Substance: NIVOLUMAB
     Indication: Oesophageal carcinoma recurrent
     Dates: start: 20250715, end: 20250729

REACTIONS (5)
  - Blood corticotrophin increased [Unknown]
  - Cortisol increased [Unknown]
  - Adrenal disorder [Unknown]
  - Pneumonia bacterial [Unknown]
  - Respiratory syncytial virus infection [Unknown]

NARRATIVE: CASE EVENT DATE: 20250729
